FAERS Safety Report 6813236-7 (Version None)
Quarter: 2010Q3

REPORT INFORMATION
  Report Type: 
  Country: None (occurrence: None)
  Receive Date: 20100701
  Receipt Date: 20100623
  Transmission Date: 20110219
  Serious: Yes (Other)
  Sender: FDA-Public Use
  Company Number: US-PFIZER INC-2010079205

PATIENT
  Age: 10 Year
  Sex: Male

DRUGS (2)
  1. ZOLOFT [Suspect]
     Indication: OBSESSIVE-COMPULSIVE DISORDER
     Dosage: UNK
     Route: 048
     Dates: start: 20100512, end: 20100601
  2. ABILIFY [Concomitant]
     Dosage: UNK

REACTIONS (6)
  - AGGRESSION [None]
  - ANXIETY [None]
  - IRRITABILITY [None]
  - PERSONALITY DISORDER [None]
  - SCREAMING [None]
  - THINKING ABNORMAL [None]
